FAERS Safety Report 5463292-6 (Version None)
Quarter: 2007Q2

REPORT INFORMATION
  Report Type: 
  Country: None (occurrence: None)
  Receive Date: 20070117
  Receipt Date: 20060321
  Transmission Date: 20071010
  Serious: Yes (Life-Threatening, Hospitalization)
  Sender: FDA-Public Use
  Company Number: 200609995

PATIENT
  Age: 77 Year
  Sex: Male
  Weight: 75 kg

DRUGS (6)
  1. GAMMAR-P I.V. [Suspect]
     Indication: LUMBOSACRAL PLEXUS INJURY
     Dosage: IV
     Route: 042
     Dates: start: 20060109, end: 20060110
  2. CARIMUNE [Suspect]
     Indication: LUMBOSACRAL PLEXUS INJURY
     Dosage: IV
     Route: 042
     Dates: start: 20060111, end: 20060113
  3. COZAAR [Concomitant]
  4. ACTOS [Concomitant]
  5. INSULIN [Concomitant]
  6. GLUCOPHAGE [Concomitant]

REACTIONS (4)
  - ANURIA [None]
  - OEDEMA PERIPHERAL [None]
  - OLIGURIA [None]
  - RENAL FAILURE [None]
